FAERS Safety Report 6698061-2 (Version None)
Quarter: 2010Q2

REPORT INFORMATION
  Report Type: 
  Country: None (occurrence: None)
  Receive Date: 20100427
  Receipt Date: 20100413
  Transmission Date: 20101027
  Serious: Yes (Disabling)
  Sender: FDA-Public Use
  Company Number: SE-RANBAXY-2010RR-33258

PATIENT
  Age: 73 Year
  Sex: Male

DRUGS (3)
  1. ZOCOR [Suspect]
     Indication: BLOOD CHOLESTEROL INCREASED
     Dosage: UNK
     Route: 048
     Dates: start: 19990101, end: 20000101
  2. ZOCOR [Suspect]
     Dosage: UNK
     Route: 048
     Dates: start: 20000101
  3. HYDRODIURIL [Concomitant]

REACTIONS (12)
  - ABASIA [None]
  - AMYOTROPHIC LATERAL SCLEROSIS [None]
  - ASTHENIA [None]
  - BLOOD CREATINE PHOSPHOKINASE INCREASED [None]
  - CHEST PAIN [None]
  - DYSSTASIA [None]
  - ELECTROMYOGRAM ABNORMAL [None]
  - MUSCLE ATROPHY [None]
  - PAIN IN EXTREMITY [None]
  - PERONEAL NERVE PALSY [None]
  - POLYNEUROPATHY [None]
  - RHABDOMYOLYSIS [None]
